FAERS Safety Report 19380783 (Version 1)
Quarter: 2021Q2

REPORT INFORMATION
  Report Type: Spontaneous
  Country: IE (occurrence: IE)
  Receive Date: 20210607
  Receipt Date: 20210607
  Transmission Date: 20210717
  Serious: Yes (Life-Threatening, Hospitalization, Other)
  Sender: FDA-Public Use
  Company Number: IE-TRIS PHARMA, INC.-21IE009473

PATIENT

DRUGS (3)
  1. LANSOPRAZOLE. [Suspect]
     Active Substance: LANSOPRAZOLE
     Indication: PRODUCT USED FOR UNKNOWN INDICATION
     Dosage: 630 MILLIGRAM, SINGLE
  2. THEOPHYLLINE [Suspect]
     Active Substance: THEOPHYLLINE ANHYDROUS
     Indication: ASTHMA
     Dosage: 12.6 GRAM, SINGLE
  3. THEOPHYLLINE [Suspect]
     Active Substance: THEOPHYLLINE ANHYDROUS
     Dosage: UNK

REACTIONS (15)
  - Nausea [Unknown]
  - Sinus tachycardia [Unknown]
  - Hyperhidrosis [Unknown]
  - Memory impairment [Recovering/Resolving]
  - Abdominal pain [Unknown]
  - Toxicity to various agents [Unknown]
  - Respiratory acidosis [Unknown]
  - Seizure [Recovered/Resolved]
  - Metabolic acidosis [Unknown]
  - Drug level increased [Recovered/Resolved]
  - Amnestic disorder [Unknown]
  - Intentional overdose [Unknown]
  - Blood pressure decreased [Unknown]
  - Dizziness [Unknown]
  - Vomiting [Unknown]
